FAERS Safety Report 7238273-2 (Version None)
Quarter: 2011Q1

REPORT INFORMATION
  Report Type: 
  Country: None (occurrence: None)
  Receive Date: 20110121
  Receipt Date: 20110119
  Transmission Date: 20110831
  Serious: Yes (Other)
  Sender: FDA-Public Use
  Company Number: US-PFIZER INC-2011013781

PATIENT
  Sex: Female
  Weight: 68.027 kg

DRUGS (5)
  1. SERTRALINE HYDROCHLORIDE [Suspect]
     Indication: DEPRESSION
     Dosage: 100 MG, 1X/DAY
     Dates: end: 20110118
  2. AMITRIPTYLINE HCL [Suspect]
     Indication: DEPRESSION
     Dosage: UNK, 1X/DAY
  3. ACETYLSALICYLIC ACID [Concomitant]
     Dosage: 81 MG, UNK
     Route: 048
  4. XANAX [Concomitant]
     Indication: ANXIETY
     Dosage: UNK
     Route: 048
  5. IBUPROFEN [Concomitant]
     Indication: PAIN
     Dosage: 800 MG, UNK

REACTIONS (2)
  - PRURITUS [None]
  - DEPRESSION [None]
